FAERS Safety Report 24461402 (Version 1)
Quarter: 2024Q4

REPORT INFORMATION
  Report Type: Report from Study
  Country: CA (occurrence: CA)
  Receive Date: 20241018
  Receipt Date: 20241018
  Transmission Date: 20250115
  Serious: No
  Sender: ROCHE
  Company Number: CA-ROCHE-3564367

PATIENT
  Age: 55 Year
  Sex: Female

DRUGS (18)
  1. RITUXAN [Suspect]
     Active Substance: RITUXIMAB
     Indication: Rheumatoid arthritis
     Dosage: MOREDOSAGEINFO NO PIRS RECEIVED
     Route: 041
     Dates: start: 20170510, end: 20180514
  2. AMLODIPINE [Concomitant]
     Active Substance: AMLODIPINE BESYLATE
  3. CHOLECALCIFEROL [Concomitant]
     Active Substance: CHOLECALCIFEROL
  4. BENADRYL [Concomitant]
     Active Substance: DIPHENHYDRAMINE HYDROCHLORIDE
  5. ARAVA [Concomitant]
     Active Substance: LEFLUNOMIDE
  6. FLUTICASONE FUROATE [Concomitant]
     Active Substance: FLUTICASONE FUROATE
  7. ESOMEPRAZOLE [Concomitant]
     Active Substance: ESOMEPRAZOLE
  8. HYDROCODONE [Concomitant]
     Active Substance: HYDROCODONE
  9. IRON [Concomitant]
     Active Substance: IRON
  10. LEFLUNOMIDE [Concomitant]
     Active Substance: LEFLUNOMIDE
  11. NEXIUM [Concomitant]
     Active Substance: ESOMEPRAZOLE MAGNESIUM
  12. PANTOPRAZOLE MAGNESIUM [Concomitant]
     Active Substance: PANTOPRAZOLE MAGNESIUM
  13. PULMICORT TURBUHALER [Concomitant]
     Active Substance: BUDESONIDE
  14. SIMPONI [Concomitant]
     Active Substance: GOLIMUMAB
  15. SYMBICORT [Concomitant]
     Active Substance: BUDESONIDE\FORMOTEROL FUMARATE DIHYDRATE
  16. TYLENOL [Concomitant]
     Active Substance: ACETAMINOPHEN
  17. VENTOLIN [Concomitant]
     Active Substance: ALBUTEROL SULFATE
  18. TETRAHYDROZOLINE HYDROCHLORIDE [Concomitant]
     Active Substance: TETRAHYDROZOLINE HYDROCHLORIDE

REACTIONS (3)
  - Influenza [Unknown]
  - Sleep disorder [Unknown]
  - Chest pain [Recovering/Resolving]

NARRATIVE: CASE EVENT DATE: 20240301
